FAERS Safety Report 14091078 (Version 1)
Quarter: 2017Q4

REPORT INFORMATION
  Report Type: Spontaneous
  Country: FR (occurrence: FR)
  Receive Date: 20171016
  Receipt Date: 20171016
  Transmission Date: 20180321
  Serious: Yes (Death, Hospitalization, Other)
  Sender: FDA-Public Use
  Company Number: FR-BRISTOL-MYERS SQUIBB COMPANY-BMS-2017-089380

PATIENT
  Age: 85 Year
  Sex: Female

DRUGS (1)
  1. COUMADINE [Suspect]
     Active Substance: WARFARIN SODIUM
     Indication: ATRIAL FIBRILLATION
     Dosage: 2 MG, IN THE EVENING
     Route: 048
     Dates: end: 20170821

REACTIONS (8)
  - Acute kidney injury [Unknown]
  - Escherichia urinary tract infection [Unknown]
  - Bronchial obstruction [Unknown]
  - Anaemia [Unknown]
  - Death [Fatal]
  - Haematuria [Recovered/Resolved]
  - Obstructive airways disorder [Unknown]
  - Haematoma [Unknown]

NARRATIVE: CASE EVENT DATE: 20170821
